FAERS Safety Report 12245008 (Version 3)
Quarter: 2016Q2

REPORT INFORMATION
  Report Type: Spontaneous
  Country: US (occurrence: US)
  Receive Date: 20160407
  Receipt Date: 20160408
  Transmission Date: 20160815
  Serious: No
  Sender: FDA-Public Use
  Company Number: US-BAYER-2016-058275

PATIENT
  Age: 64 Year
  Sex: Male
  Weight: 95.24 kg

DRUGS (2)
  1. ALEVE PM [Suspect]
     Active Substance: DIPHENHYDRAMINE HYDROCHLORIDE\NAPROXEN SODIUM
     Indication: FEELING OF RELAXATION
     Dosage: 1 DF, ONCE
     Route: 048
     Dates: start: 20160323
  2. ALEVE PM [Suspect]
     Active Substance: DIPHENHYDRAMINE HYDROCHLORIDE\NAPROXEN SODIUM
     Indication: SLEEP DISORDER THERAPY

REACTIONS (2)
  - Enuresis [None]
  - Product use issue [None]

NARRATIVE: CASE EVENT DATE: 20160324
